FAERS Safety Report 9349522 (Version 1)
Quarter: 2013Q2

REPORT INFORMATION
  Report Type: Report from Study
  Country: US (occurrence: US)
  Receive Date: 20130614
  Receipt Date: 20130614
  Transmission Date: 20140414
  Serious: Yes (Hospitalization)
  Sender: FDA-Public Use
  Company Number: US-GLAXOSMITHKLINE-A1026685A

PATIENT
  Age: 51 Year
  Sex: Female
  Weight: 50.8 kg

DRUGS (14)
  1. MELPHALAN [Suspect]
     Indication: AMYLOIDOSIS
     Route: 042
     Dates: start: 20130514
  2. BORTEZOMIB [Suspect]
     Indication: AMYLOIDOSIS
     Dosage: 1.3MGM2 CYCLIC
     Route: 042
     Dates: start: 20130313, end: 20130520
  3. DEXAMETHASONE [Suspect]
     Indication: AMYLOIDOSIS
     Dosage: 20MG CYCLIC
     Route: 042
     Dates: start: 20130313
  4. SYNTHROID [Concomitant]
  5. ACYCLOVIR [Concomitant]
  6. LORAZEPAM [Concomitant]
  7. SPIRONOLACTONE [Concomitant]
  8. MIDODRINE HYDROCHLORIDE [Concomitant]
  9. PROCHLORPERAZINE MALEATE [Concomitant]
  10. OXYCODONE [Concomitant]
  11. LEVAQUIN [Concomitant]
  12. DIFLUCAN [Concomitant]
  13. PANTOPRAZOLE SODIUM [Concomitant]
  14. PREVIDENT [Concomitant]

REACTIONS (2)
  - Pancytopenia [Not Recovered/Not Resolved]
  - Asthenia [Not Recovered/Not Resolved]
